FAERS Safety Report 4816113-6 (Version None)
Quarter: 2005Q4

REPORT INFORMATION
  Report Type: 
  Country: None (occurrence: None)
  Receive Date: 20051026
  Receipt Date: 20051010
  Transmission Date: 20060501
  Serious: Yes (Hospitalization, Other)
  Sender: FDA-Public Use
  Company Number: USA0507104167

PATIENT
  Age: 80 Year
  Sex: Male
  Weight: 65 kg

DRUGS (6)
  1. CYMBALTA [Suspect]
     Indication: DEPRESSION
     Dosage: 30 MG DAY
     Dates: start: 20050720, end: 20050722
  2. ZOLOFT [Concomitant]
  3. VENLAFAXINE HCL [Concomitant]
  4. THEOPHYLLINE [Concomitant]
  5. LEVOXYL [Concomitant]
  6. FLOMAX [Concomitant]

REACTIONS (11)
  - AMNESIA [None]
  - BIFASCICULAR BLOCK [None]
  - CONVULSION [None]
  - DISORIENTATION [None]
  - DYSKINESIA [None]
  - HALLUCINATION, VISUAL [None]
  - HUMERUS FRACTURE [None]
  - LOSS OF CONSCIOUSNESS [None]
  - MALAISE [None]
  - SOMNOLENCE [None]
  - VENTRICULAR EXTRASYSTOLES [None]
